FAERS Safety Report 18561499 (Version 1)
Quarter: 2020Q4

REPORT INFORMATION
  Report Type: Other
  Country: CA (occurrence: CA)
  Receive Date: 20201201
  Receipt Date: 20201201
  Transmission Date: 20210114
  Serious: Yes (Other)
  Sender: FDA-Public Use
  Company Number: CA-CELLTRION INC.-2020CA032640

PATIENT

DRUGS (12)
  1. FOLIC ACID. [Concomitant]
     Active Substance: FOLIC ACID
  2. PREDNISONE. [Concomitant]
     Active Substance: PREDNISONE
  3. CALCIUM [Concomitant]
     Active Substance: CALCIUM
  4. CLONAZEPAM. [Concomitant]
     Active Substance: CLONAZEPAM
  5. ACETYLSALICYLIC ACID [Concomitant]
     Active Substance: ASPIRIN
  6. RISEDRONATE [Concomitant]
     Active Substance: RISEDRONATE SODIUM
  7. SYMBICORT [Concomitant]
     Active Substance: BUDESONIDE\FORMOTEROL FUMARATE DIHYDRATE
  8. WELLBUTRIN [Concomitant]
     Active Substance: BUPROPION HYDROCHLORIDE
  9. RITUXIMAB (UNKNOWN) [Suspect]
     Active Substance: RITUXIMAB
     Indication: RHEUMATOID ARTHRITIS
     Dosage: 1000 MG, 1 EVERY 15 DAYS
     Route: 042
  10. METHOTREXATE. [Concomitant]
     Active Substance: METHOTREXATE
     Route: 058
  11. PANTOLOC [PANTOPRAZOLE] [Concomitant]
     Active Substance: PANTOPRAZOLE SODIUM
  12. PROZAC [Concomitant]
     Active Substance: FLUOXETINE HYDROCHLORIDE

REACTIONS (3)
  - Off label use [Unknown]
  - Pneumonia pseudomonal [Unknown]
  - Respiratory moniliasis [Unknown]
